FAERS Safety Report 7704184-9 (Version None)
Quarter: 2011Q3

REPORT INFORMATION
  Report Type: 
  Country: None (occurrence: None)
  Receive Date: 20110801
  Receipt Date: 20110405
  Transmission Date: 20111222
  Serious: Yes (Hospitalization)
  Sender: FDA-Public Use
  Company Number: AMAG201100106

PATIENT
  Age: 79 Year
  Sex: Female
  Weight: 54.9 kg

DRUGS (8)
  1. ZEMPLAR [Concomitant]
  2. PLAVIX [Concomitant]
  3. LASIX [Concomitant]
  4. FERAHEME [Suspect]
     Indication: ANAEMIA
     Dosage: 510 MG, SINGLE, INTRAVENOUS
     Route: 042
     Dates: start: 20110404, end: 20110404
  5. ASPIRIN [Concomitant]
  6. NITROQUICK (GLYCERYL TRINITRATE) [Concomitant]
  7. COREG [Concomitant]
  8. ZOCOR [Concomitant]

REACTIONS (9)
  - TACHYCARDIA [None]
  - HYPOTENSION [None]
  - SYNCOPE [None]
  - OXYGEN SATURATION DECREASED [None]
  - ANAPHYLACTIC REACTION [None]
  - HEADACHE [None]
  - VOMITING [None]
  - ABDOMINAL PAIN [None]
  - PALLOR [None]
